FAERS Safety Report 23607400 (Version 3)
Quarter: 2024Q2

REPORT INFORMATION
  Report Type: Report from Study
  Country: EG (occurrence: EG)
  Receive Date: 20240307
  Receipt Date: 20240406
  Transmission Date: 20240716
  Serious: No
  Sender: FDA-Public Use
  Company Number: EG-SANDOZ-SDZ2023EG021102

PATIENT
  Age: 12 Year
  Sex: Male
  Weight: 42 kg

DRUGS (1)
  1. OMNITROPE [Suspect]
     Active Substance: SOMATROPIN
     Indication: Growth hormone deficiency
     Dosage: 1.3 MG, QD
     Route: 058
     Dates: start: 20220323

REACTIONS (3)
  - Wrong technique in device usage process [Unknown]
  - Device breakage [Unknown]
  - Incorrect dose administered by device [Unknown]

NARRATIVE: CASE EVENT DATE: 20220323
